FAERS Safety Report 7736358-5 (Version None)
Quarter: 2011Q3

REPORT INFORMATION
  Report Type: 
  Country: None (occurrence: None)
  Receive Date: 20110908
  Receipt Date: 20110825
  Transmission Date: 20111222
  Serious: Yes (Hospitalization)
  Sender: FDA-Public Use
  Company Number: DE-MYLANLABS-2011S1017666

PATIENT
  Age: 70 Year
  Sex: Male
  Weight: 67 kg

DRUGS (2)
  1. CLINDAMYCIN [Suspect]
     Indication: ALOPECIA SCARRING
     Dosage: DAILY DOSE: 600 MG MILLIGRAM(S) EVERY DAY
     Route: 048
     Dates: start: 20110510
  2. RIFAMPICIN [Suspect]
     Indication: ALOPECIA SCARRING
     Dosage: DAILY DOSE: 600 MG MILLIGRAM(S) EVERY DAY
     Route: 048
     Dates: start: 20110510

REACTIONS (1)
  - LEUKOCYTOCLASTIC VASCULITIS [None]
